FAERS Safety Report 16523723 (Version 7)
Quarter: 2020Q4

REPORT INFORMATION
  Report Type: Spontaneous
  Country: US (occurrence: US)
  Receive Date: 20190703
  Receipt Date: 20201117
  Transmission Date: 20210113
  Serious: No
  Sender: FDA-Public Use
  Company Number: US-PFIZER INC-2019285303

PATIENT
  Age: 57 Year
  Sex: Female

DRUGS (3)
  1. LYRICA [Suspect]
     Active Substance: PREGABALIN
     Dosage: 300 MG, 1X/DAY (TAKE ONE CAPSULE ONCE DAILY)
  2. LYRICA [Suspect]
     Active Substance: PREGABALIN
     Dosage: 275 MG, DAILY (200 MG CAPSULE, ONE CAP DAILY, WITH THREE 25 MG CAPS FOR TOTAL DAILY DOSE=275 MG)
     Route: 048
  3. LYRICA [Suspect]
     Active Substance: PREGABALIN
     Dosage: 275 MG, DAILY (TAKE 3 CAPSULES 25 MG TOGETHER WITH 200MG CAPSULE)
     Route: 048

REACTIONS (2)
  - Memory impairment [Unknown]
  - Panic reaction [Unknown]
